FAERS Safety Report 10369111 (Version 2)
Quarter: 2014Q3

REPORT INFORMATION
  Report Type: Spontaneous
  Country: JP (occurrence: JP)
  Receive Date: 20140807
  Receipt Date: 20140819
  Transmission Date: 20150326
  Serious: Yes (Death, Other)
  Sender: FDA-Public Use
  Company Number: JP-JNJFOC-20140720996

PATIENT
  Sex: Male

DRUGS (1)
  1. DUROTEP MT [Suspect]
     Active Substance: FENTANYL
     Indication: PAIN
     Route: 062
     Dates: end: 20140727

REACTIONS (2)
  - Pneumonia [Unknown]
  - Renal failure [Fatal]
